FAERS Safety Report 24406372 (Version 1)
Quarter: 2024Q4

REPORT INFORMATION
  Report Type: Spontaneous
  Country: GB (occurrence: GB)
  Receive Date: 20241007
  Receipt Date: 20241007
  Transmission Date: 20250115
  Serious: Yes (Other)
  Sender: TEVA
  Company Number: None

PATIENT
  Age: 60 Year
  Sex: Female

DRUGS (4)
  1. BISOPROLOL [Suspect]
     Active Substance: BISOPROLOL\BISOPROLOL FUMARATE
     Indication: Palpitations
     Route: 065
     Dates: start: 20240813, end: 20240916
  2. BISOPROLOL [Suspect]
     Active Substance: BISOPROLOL\BISOPROLOL FUMARATE
     Indication: Palpitations
     Route: 065
     Dates: start: 20240813
  3. ASPIRIN [Concomitant]
     Active Substance: ASPIRIN
     Indication: Adverse drug reaction
  4. CITALOPRAM [Concomitant]
     Active Substance: CITALOPRAM
     Indication: Adverse drug reaction

REACTIONS (3)
  - Pruritus [Recovered/Resolved]
  - Poor quality sleep [Recovering/Resolving]
  - Oral pain [Recovering/Resolving]

NARRATIVE: CASE EVENT DATE: 20240816
